FAERS Safety Report 9709133 (Version 2)
Quarter: 2013Q4

REPORT INFORMATION
  Report Type: Report from Study
  Country: US (occurrence: US)
  Receive Date: 20131125
  Receipt Date: 20131125
  Transmission Date: 20140711
  Serious: Yes (Other)
  Sender: FDA-Public Use
  Company Number: US-US-EMD SERONO, INC.-7245401

PATIENT
  Sex: Female

DRUGS (2)
  1. REBIF [Suspect]
     Indication: MULTIPLE SCLEROSIS
     Route: 058
     Dates: start: 20110228
  2. CITALOPRAM [Concomitant]
     Indication: DEPRESSION

REACTIONS (2)
  - Carotid artery occlusion [Unknown]
  - Carotid artery stenosis [Unknown]
